FAERS Safety Report 21311582 (Version 1)
Quarter: 2022Q3

REPORT INFORMATION
  Report Type: Spontaneous
  Country: CN (occurrence: CN)
  Receive Date: 20220909
  Receipt Date: 20220909
  Transmission Date: 20221027
  Serious: Yes (Hospitalization, Other)
  Sender: FDA-Public Use
  Company Number: CN-MSNLABS-2022MSNLIT01033

PATIENT

DRUGS (4)
  1. CAPECITABINE [Suspect]
     Active Substance: CAPECITABINE
     Indication: Gallbladder cancer
     Dosage: 5 CYCLES
     Route: 065
     Dates: start: 20190128, end: 20190331
  2. CAPECITABINE [Suspect]
     Active Substance: CAPECITABINE
     Dosage: FROM 1 TO 14,Q3W
     Route: 065
     Dates: start: 201908, end: 201909
  3. TRASTUZUMAB [Suspect]
     Active Substance: TRASTUZUMAB
     Indication: Gallbladder cancer
     Dosage: Q3W
     Route: 065
  4. AFATINIB [Suspect]
     Active Substance: AFATINIB
     Indication: Gallbladder cancer
     Route: 065

REACTIONS (3)
  - Disease progression [Unknown]
  - Metastases to lung [Unknown]
  - Metastases to central nervous system [Unknown]

NARRATIVE: CASE EVENT DATE: 20190101
